FAERS Safety Report 8814543 (Version 2)
Quarter: 2012Q4

REPORT INFORMATION
  Report Type: Spontaneous
  Country: US (occurrence: None)
  Receive Date: 20120925
  Receipt Date: 20121002
  Transmission Date: 20130627
  Serious: Yes (Other)
  Sender: FDA-Public Use
  Company Number: ACO_28713_2012

PATIENT
  Sex: Female

DRUGS (14)
  1. AMPYRA [Suspect]
     Indication: DRUG USE FOR UNKNOWN INDICATION
     Route: 048
     Dates: start: 201008, end: 201209
  2. KLONOPIN (CLONAZEPAM) [Concomitant]
  3. XANAX (ALPRAZOLAM) [Concomitant]
  4. DETROL LA (TOLTERODINE I-TARTRATE) [Concomitant]
  5. AMBIEN (ZOLPIDEM TARTRATE) [Concomitant]
  6. VICODIN (HYDROCODONE BITARTRATE, PARACETAMOL) [Concomitant]
  7. PRAVASTATIN SODIUM (PRAVASTATIN SODIUM) [Concomitant]
  8. FENTANYL (FENTANYL) [Concomitant]
  9. BACLOFEN (BACLOFEN) [Concomitant]
  10. METOPROLOL TARTRATE (METOPROLOL TARTRATE) [Concomitant]
  11. LEXAPRO (ESCITALOPRAM OXALATE) [Concomitant]
  12. PROVIGIL (MODAFINIL) [Concomitant]
  13. MELATONIN (MELATONIN) [Concomitant]
  14. AVONEX (INTERFERON BETA-1A) [Concomitant]

REACTIONS (9)
  - Hypertension [None]
  - Back pain [None]
  - Tremor [None]
  - Hypoaesthesia [None]
  - Fatigue [None]
  - Balance disorder [None]
  - Paraesthesia [None]
  - Constipation [None]
  - Dyspepsia [None]
